FAERS Safety Report 18210554 (Version 1)
Quarter: 2020Q3

REPORT INFORMATION
  Report Type: Spontaneous
  Country: US (occurrence: US)
  Receive Date: 20200829
  Receipt Date: 20200829
  Transmission Date: 20201103
  Serious: No
  Sender: FDA-Public Use
  Company Number: US-ENDO PHARMACEUTICALS INC-2020-001659

PATIENT
  Sex: Female

DRUGS (4)
  1. DETROL [Concomitant]
     Active Substance: TOLTERODINE TARTRATE
     Indication: RENAL FAILURE
     Dosage: UNK UNKNOWN, UNKNOWN
     Route: 065
  2. DETROL [Concomitant]
     Active Substance: TOLTERODINE TARTRATE
     Indication: BLADDER DYSFUNCTION
  3. PREDNISONE. [Suspect]
     Active Substance: PREDNISONE
     Indication: PRODUCT USED FOR UNKNOWN INDICATION
     Dosage: 20 MG, DAILY FOR 4 YEARS
     Route: 065
  4. PREDNISONE. [Suspect]
     Active Substance: PREDNISONE
     Dosage: 60 MG, DAILY FOR 2 YEARS
     Route: 065

REACTIONS (1)
  - Calcium deficiency [Unknown]
